FAERS Safety Report 7135289-1 (Version None)
Quarter: 2010Q4

REPORT INFORMATION
  Report Type: 
  Country: None (occurrence: None)
  Receive Date: 20101203
  Receipt Date: 20101123
  Transmission Date: 20110411
  Serious: Yes (Death, Hospitalization)
  Sender: FDA-Public Use
  Company Number: A0897405A

PATIENT
  Age: 26 Year
  Sex: Male

DRUGS (4)
  1. ADVAIR [Suspect]
     Indication: ASTHMA
     Dosage: 1PUFF TWICE PER DAY
     Route: 055
  2. COMBIVENT [Concomitant]
  3. PRILOSEC [Concomitant]
  4. PREDNISONE [Concomitant]

REACTIONS (16)
  - BRAIN OEDEMA [None]
  - CANDIDIASIS [None]
  - CARDIAC ARREST [None]
  - CEREBRAL INFARCTION [None]
  - CONVULSION [None]
  - DEVICE RELATED INFECTION [None]
  - ELECTROMECHANICAL DISSOCIATION [None]
  - HYPOXIC-ISCHAEMIC ENCEPHALOPATHY [None]
  - MYOCLONIC EPILEPSY [None]
  - PNEUMONIA ASPIRATION [None]
  - PULMONARY CONGESTION [None]
  - PULMONARY OEDEMA [None]
  - RESPIRATORY FAILURE [None]
  - STAPHYLOCOCCAL INFECTION [None]
  - STATUS ASTHMATICUS [None]
  - TACHYCARDIA [None]
